FAERS Safety Report 18218616 (Version 13)
Quarter: 2022Q1

REPORT INFORMATION
  Report Type: Spontaneous
  Country: US (occurrence: US)
  Receive Date: 20200901
  Receipt Date: 20220126
  Transmission Date: 20220423
  Serious: Yes (Other)
  Sender: FDA-Public Use
  Company Number: US-PFIZER INC-2019524430

PATIENT
  Age: 7 Decade
  Sex: Female
  Weight: 68.04 kg

DRUGS (2)
  1. ARTHROTEC [Suspect]
     Active Substance: DICLOFENAC SODIUM\MISOPROSTOL
     Indication: Arthritis
     Dosage: 1 TABLET (75 MG/200 MCG) DAILY
     Route: 048
  2. ARTHROTEC [Suspect]
     Active Substance: DICLOFENAC SODIUM\MISOPROSTOL
     Dosage: 1 TABLET (75 MG/200 MCG) DAILY
     Route: 048
     Dates: start: 20210414

REACTIONS (1)
  - Blindness [Not Recovered/Not Resolved]
